FAERS Safety Report 19304030 (Version 1)
Quarter: 2021Q2

REPORT INFORMATION
  Report Type: Spontaneous
  Country: US (occurrence: US)
  Receive Date: 20210525
  Receipt Date: 20210525
  Transmission Date: 20210717
  Serious: Yes (Hospitalization)
  Sender: FDA-Public Use
  Company Number: US-AMGEN-USASP2021076202

PATIENT
  Age: 81 Year
  Sex: Female

DRUGS (1)
  1. PROLIA [Suspect]
     Active Substance: DENOSUMAB
     Indication: OSTEOPOROSIS POSTMENOPAUSAL
     Dosage: 60 MILLIGRAM, Q6MO
     Route: 065
     Dates: start: 201903

REACTIONS (6)
  - Chronic obstructive pulmonary disease [Unknown]
  - Balance disorder [Unknown]
  - Intervertebral disc protrusion [Recovering/Resolving]
  - Rotator cuff syndrome [Unknown]
  - Chondropathy [Unknown]
  - Fall [Unknown]

NARRATIVE: CASE EVENT DATE: 201903
